FAERS Safety Report 6782399-4 (Version None)
Quarter: 2010Q2

REPORT INFORMATION
  Report Type: 
  Country: None (occurrence: None)
  Receive Date: 20100616
  Receipt Date: 20100531
  Transmission Date: 20101027
  Serious: Yes (Other)
  Sender: FDA-Public Use
  Company Number: 008583

PATIENT
  Age: 93 Year
  Sex: Female

DRUGS (2)
  1. PEGAPTANIB SODIUM (PEGAPTANIB SODIUM (PEGAPTANIB SODIUM) [Suspect]
     Dosage: AT  2 AND 4 MONTHS, INTRAOCULAR
     Route: 031
  2. VERTEPORFIN (VERTEPORFIN) [Concomitant]

REACTIONS (3)
  - CORNEAL DEPOSITS [None]
  - KERATOPATHY [None]
  - VISUAL ACUITY REDUCED [None]
